FAERS Safety Report 4370999-0 (Version None)
Quarter: 2004Q2

REPORT INFORMATION
  Report Type: 
  Country: None (occurrence: None)
  Receive Date: 20040526
  Receipt Date: 20040517
  Transmission Date: 20050107
  Serious: Yes (Other)
  Sender: FDA-Public Use
  Company Number: B0331161A

PATIENT
  Age: 52 Year
  Sex: Female

DRUGS (3)
  1. NICODERM CQ [Suspect]
     Indication: EX-SMOKER
     Dosage: 21 MG / PER DAY / TRANSDERMAL
     Route: 062
     Dates: start: 20040413, end: 20040421
  2. CARBAMAZEPINE [Concomitant]
  3. DIAZEPAM [Concomitant]

REACTIONS (13)
  - ABNORMAL DREAMS [None]
  - AFFECT LABILITY [None]
  - DECREASED APPETITE [None]
  - DISTURBANCE IN ATTENTION [None]
  - ENERGY INCREASED [None]
  - FLIGHT OF IDEAS [None]
  - HEART RATE INCREASED [None]
  - HOT FLUSH [None]
  - INSOMNIA [None]
  - IRRITABILITY [None]
  - LOGORRHOEA [None]
  - MANIA [None]
  - PALPITATIONS [None]
